FAERS Safety Report 18619706 (Version 1)
Quarter: 2020Q4

REPORT INFORMATION
  Report Type: Spontaneous
  Country: PL (occurrence: PL)
  Receive Date: 20201215
  Receipt Date: 20201215
  Transmission Date: 20210114
  Serious: Yes (Other)
  Sender: FDA-Public Use
  Company Number: PL-PFIZER INC-2020493139

PATIENT
  Age: 40 Year
  Sex: Female

DRUGS (1)
  1. DOSTINEX [Suspect]
     Active Substance: CABERGOLINE
     Indication: BLOOD PROLACTIN INCREASED
     Dosage: HALF A TABLET PER WEEK

REACTIONS (12)
  - Eye oedema [Recovering/Resolving]
  - Discomfort [Recovering/Resolving]
  - Upper limb fracture [Recovering/Resolving]
  - Decreased appetite [Recovering/Resolving]
  - Urinary retention [Recovering/Resolving]
  - Bladder disorder [Recovering/Resolving]
  - Epilepsy [Recovering/Resolving]
  - Lower limb fracture [Recovering/Resolving]
  - Neurosis [Recovering/Resolving]
  - Dizziness [Recovering/Resolving]
  - Sleep disorder [Recovering/Resolving]
  - Paraesthesia [Recovering/Resolving]
